FAERS Safety Report 6527538-5 (Version None)
Quarter: 2010Q1

REPORT INFORMATION
  Report Type: 
  Country: None (occurrence: None)
  Receive Date: 20100104
  Receipt Date: 20100104
  Transmission Date: 20100710
  Serious: Yes (Other)
  Sender: FDA-Public Use
  Company Number: None

PATIENT
  Sex: Female
  Weight: 43.2 kg

DRUGS (3)
  1. SOLODYN [Suspect]
     Indication: ACNE
     Dosage: 1/2 PILL DAILY IN EVENING SWALLOW W/WATER
     Dates: start: 20091208
  2. ZIANA [Concomitant]
  3. TRIAZ [Concomitant]

REACTIONS (5)
  - DIZZINESS [None]
  - HEADACHE [None]
  - HYPOAESTHESIA FACIAL [None]
  - SPEECH DISORDER [None]
  - VISION BLURRED [None]
